FAERS Safety Report 7537582-7 (Version None)
Quarter: 2011Q2

REPORT INFORMATION
  Report Type: 
  Country: None (occurrence: None)
  Receive Date: 20110609
  Receipt Date: 20070411
  Transmission Date: 20111010
  Serious: Yes (Death)
  Sender: FDA-Public Use
  Company Number: PHFR2007GB01294

PATIENT
  Sex: Male

DRUGS (2)
  1. HEROIN [Suspect]
     Route: 065
  2. CLOZAPINE [Suspect]
     Route: 048
     Dates: start: 20050214

REACTIONS (1)
  - OVERDOSE [None]
